FAERS Safety Report 5389921-3 (Version None)
Quarter: 2007Q3

REPORT INFORMATION
  Report Type: 
  Country: None (occurrence: None)
  Receive Date: 20070716
  Receipt Date: 20070716
  Transmission Date: 20080115
  Serious: No
  Sender: FDA-Public Use
  Company Number: None

PATIENT
  Sex: Male
  Weight: 75.7507 kg

DRUGS (1)
  1. LEVAQUIN [Suspect]
     Indication: PROSTATE INFECTION
     Dosage: 1 TABLET EACH DAY PO
     Route: 048
     Dates: start: 20070625, end: 20070713

REACTIONS (2)
  - MUSCLE RUPTURE [None]
  - TENDON DISORDER [None]
